FAERS Safety Report 14612617 (Version 1)
Quarter: 2018Q1

REPORT INFORMATION
  Report Type: Spontaneous
  Country: US (occurrence: US)
  Receive Date: 20180308
  Receipt Date: 20180308
  Transmission Date: 20180509
  Serious: Yes (Hospitalization, Other)
  Sender: FDA-Public Use
  Company Number: US-BAYER-2018-037326

PATIENT
  Age: 36 Year
  Sex: Male

DRUGS (1)
  1. EOVIST [Suspect]
     Active Substance: GADOXETATE DISODIUM
     Indication: NUCLEAR MAGNETIC RESONANCE IMAGING LIVER
     Dosage: 10 ML, ONCE
     Route: 042
     Dates: start: 20180223

REACTIONS (5)
  - Paralysis [Recovering/Resolving]
  - Blood pressure increased [Recovering/Resolving]
  - Hypoaesthesia [Recovering/Resolving]
  - Grip strength decreased [Recovering/Resolving]
  - Gait disturbance [Recovering/Resolving]

NARRATIVE: CASE EVENT DATE: 20180223
